FAERS Safety Report 7085068-9 (Version None)
Quarter: 2010Q4

REPORT INFORMATION
  Report Type: 
  Country: None (occurrence: None)
  Receive Date: 20101105
  Receipt Date: 20101027
  Transmission Date: 20110411
  Serious: Yes (Other)
  Sender: FDA-Public Use
  Company Number: CH-BAYER-201042323GPV

PATIENT
  Age: 47 Year
  Sex: Female
  Weight: 52 kg

DRUGS (7)
  1. SORAFENIB [Suspect]
     Indication: GLIOBLASTOMA MULTIFORME
     Dosage: TOTAL DAILY DOSE: 800 MG  UNIT DOSE: 200 MG
     Route: 048
     Dates: start: 20100803, end: 20100915
  2. TEMODAR [Suspect]
     Indication: GLIOBLASTOMA MULTIFORME
     Dosage: 200 MG/M2
     Dates: start: 20100803, end: 20100915
  3. FOLIC ACID [Concomitant]
  4. NEXIUM [Concomitant]
  5. PRAVASTATIN [Concomitant]
  6. BACTRIM DS [Concomitant]
  7. MALTOFER [Concomitant]
     Dosage: 1 CP/DAY

REACTIONS (1)
  - DYSLIPIDAEMIA [None]
